FAERS Safety Report 5277865-7 (Version None)
Quarter: 2007Q1

REPORT INFORMATION
  Report Type: 
  Country: None (occurrence: None)
  Receive Date: 20070321
  Receipt Date: 20070312
  Transmission Date: 20070707
  Serious: Yes (Other)
  Sender: FDA-Public Use
  Company Number: 238133

PATIENT
  Sex: Female

DRUGS (5)
  1. LUCENTIS [Suspect]
     Indication: MACULAR DEGENERATION
     Dosage: INTRAVITREAL
     Dates: start: 20070212
  2. COZAAR [Concomitant]
  3. ZYRTEC [Concomitant]
  4. SYNTHROID [Concomitant]
  5. PRESERVISION NOS (VITAMINS AND MINERALS) [Concomitant]

REACTIONS (4)
  - BLOOD PRESSURE INCREASED [None]
  - HEADACHE [None]
  - MUSCULOSKELETAL STIFFNESS [None]
  - PYREXIA [None]
